FAERS Safety Report 5638424-7 (Version None)
Quarter: 2008Q1

REPORT INFORMATION
  Report Type: 
  Country: None (occurrence: None)
  Receive Date: 20080222
  Receipt Date: 20080222
  Transmission Date: 20080703
  Serious: Yes (Death, Hospitalization)
  Sender: FDA-Public Use
  Company Number: None

PATIENT
  Sex: Female
  Weight: 76.7 kg

DRUGS (6)
  1. CYCLOPHOSPHAMIDE [Suspect]
     Dosage: 2184 MG
     Dates: end: 20040224
  2. DAUNORUBICIN HCL [Suspect]
     Dosage: 435 MG
     Dates: end: 20040226
  3. DEXAMETHASONE TAB [Suspect]
     Dosage: 143 MG
     Dates: end: 20040311
  4. ELSPAR [Suspect]
     Dosage: 10920 MG
     Dates: end: 20040228
  5. VINCRISTINE SULFATE [Suspect]
     Dosage: 4 MG
     Dates: end: 20040302
  6. ALLOPURINOL [Suspect]
     Dosage: 2400 MG
     Dates: end: 20050227

REACTIONS (27)
  - ALANINE AMINOTRANSFERASE INCREASED [None]
  - ASPARTATE AMINOTRANSFERASE INCREASED [None]
  - ATELECTASIS [None]
  - BLOOD ALKALINE PHOSPHATASE INCREASED [None]
  - BLOOD BILIRUBIN INCREASED [None]
  - BLOOD PRESSURE DIASTOLIC DECREASED [None]
  - BLOOD PRESSURE SYSTOLIC INCREASED [None]
  - CEREBRAL HAEMORRHAGE [None]
  - CEREBROVASCULAR ACCIDENT [None]
  - FALL [None]
  - HAEMATOMA [None]
  - HAEMOPTYSIS [None]
  - HEART RATE INCREASED [None]
  - HYDROCEPHALUS [None]
  - HYPOXIA [None]
  - INTRACRANIAL PRESSURE INCREASED [None]
  - MOUTH HAEMORRHAGE [None]
  - PNEUMONIA [None]
  - PULMONARY ALVEOLAR HAEMORRHAGE [None]
  - PULMONARY OEDEMA [None]
  - PULSE ABSENT [None]
  - REFUSAL OF TREATMENT BY RELATIVE [None]
  - RESPIRATORY DISTRESS [None]
  - SEPSIS [None]
  - STREPTOCOCCAL INFECTION [None]
  - TACHYCARDIA [None]
  - VISUAL ACUITY REDUCED [None]
